FAERS Safety Report 8184421-X (Version None)
Quarter: 2012Q1

REPORT INFORMATION
  Report Type: 
  Country: None (occurrence: None)
  Receive Date: 20120305
  Receipt Date: 20120227
  Transmission Date: 20120608
  Serious: Yes (Other)
  Sender: FDA-Public Use
  Company Number: BR-BRISTOL-MYERS SQUIBB COMPANY-16374498

PATIENT
  Age: 68 Year
  Sex: Female
  Weight: 82 kg

DRUGS (7)
  1. METFORMIN HCL [Suspect]
     Indication: GLUCOSE TOLERANCE IMPAIRED
     Dosage: 1 DF: 1 TABS/ DAY IN THE NIGHT GLIFAGE XR 500MG TABS STARTED MORE THAN THREE YEARS AGO
     Route: 048
  2. PAROXETINE HCL [Concomitant]
     Dosage: 1 DF: 1 TABS/DAY 20MG TBAS
     Route: 048
     Dates: start: 20110701
  3. FOSAMAX [Concomitant]
     Indication: OSTEOPOROSIS
     Dosage: 1 DF: 1 TAB ON MONDAYS
     Route: 048
  4. IRBESARTAN + HYDROCHLOROTHIAZIDE [Suspect]
     Indication: HYPERTENSION
     Dosage: APROZIDE 300/12.5MG/TABS, STARTED MORE THAN THREE YEARS AGO
     Route: 048
     Dates: end: 20120121
  5. ASPIRIN [Concomitant]
     Indication: PROTHROMBIN LEVEL DECREASED
     Dosage: ASPIRINA PREVENT 100MG TABS 1 DF: 1 TABS/DAY IN THE NIGHT
     Route: 048
     Dates: start: 20110701
  6. VYTORIN [Concomitant]
     Dosage: 1 DF: 1 TABS/DAY IN NIGHT VYTORIN TABS
     Route: 048
  7. CHOLECALCIFEROL [Concomitant]
     Indication: OSTEOPOROSIS
     Dosage: STARTED MORE THAN 3YEARS AGO
     Route: 048

REACTIONS (5)
  - BREAST CANCER [None]
  - SYNCOPE [None]
  - MEDICATION RESIDUE [None]
  - INFARCTION [None]
  - BLOOD PRESSURE FLUCTUATION [None]
